FAERS Safety Report 10264663 (Version 1)
Quarter: 2014Q2

REPORT INFORMATION
  Report Type: Spontaneous
  Country: US (occurrence: US)
  Receive Date: 20140627
  Receipt Date: 20140627
  Transmission Date: 20141212
  Serious: Yes (Other)
  Sender: FDA-Public Use
  Company Number: US-INCYTE CORPORATION-2014IN001761

PATIENT
  Age: 59 Year
  Sex: Male

DRUGS (5)
  1. JAKAFI [Suspect]
     Indication: MYELODYSPLASTIC SYNDROME
     Dosage: 15 MG, BID
     Route: 048
     Dates: start: 20140301, end: 20140602
  2. JAKAFI [Suspect]
     Dosage: NOT SPECIFIED
     Route: 048
  3. PAXIL                              /00830802/ [Concomitant]
  4. PROCRIT                            /00909301/ [Concomitant]
  5. MELOXICAM [Concomitant]

REACTIONS (4)
  - Ear infection [Recovering/Resolving]
  - Pruritus [Recovering/Resolving]
  - Rosacea [Recovering/Resolving]
  - Pigmentation disorder [Recovering/Resolving]
